FAERS Safety Report 20611478 (Version 1)
Quarter: 2022Q1

REPORT INFORMATION
  Report Type: Spontaneous
  Country: US (occurrence: None)
  Receive Date: 20220317
  Receipt Date: 20220317
  Transmission Date: 20220423
  Serious: No
  Sender: FDA-Public Use
  Company Number: None

PATIENT
  Age: 63 Year
  Sex: Female
  Weight: 86.4 kg

DRUGS (15)
  1. VICTOZA [Suspect]
     Active Substance: LIRAGLUTIDE
     Dosage: FREQUENCY : DAILY;?
     Route: 058
     Dates: start: 20211109, end: 20220121
  2. INSULIN DETEMIR [Concomitant]
     Active Substance: INSULIN DETEMIR
  3. INSULIN ASPART [Concomitant]
     Active Substance: INSULIN ASPART
  4. ERGOCALCIFEROL [Concomitant]
     Active Substance: ERGOCALCIFEROL
  5. ATORVASTATIN [Concomitant]
     Active Substance: ATORVASTATIN
  6. PANTOPRAZOLE SODIUM [Concomitant]
     Active Substance: PANTOPRAZOLE SODIUM
  7. diltiazem ER 360 mg [Concomitant]
  8. dicyclomine 10 mg [Concomitant]
  9. AMITRIPTYLINE [Concomitant]
     Active Substance: AMITRIPTYLINE
  10. ASPIRIN [Concomitant]
     Active Substance: ASPIRIN
  11. CANAGLIFLOZIN [Concomitant]
     Active Substance: CANAGLIFLOZIN
  12. HYDROXYZINE HYDROCHLORIDE [Concomitant]
     Active Substance: HYDROXYZINE HYDROCHLORIDE
  13. HYDROCHLOROTHIAZIDE [Concomitant]
     Active Substance: HYDROCHLOROTHIAZIDE
  14. IRBESARTAN [Concomitant]
     Active Substance: IRBESARTAN
  15. LORATADINE [Concomitant]
     Active Substance: LORATADINE

REACTIONS (2)
  - Nausea [None]
  - Vomiting [None]

NARRATIVE: CASE EVENT DATE: 20220117
